FAERS Safety Report 7555074-6 (Version None)
Quarter: 2011Q2

REPORT INFORMATION
  Report Type: 
  Country: None (occurrence: None)
  Receive Date: 20110617
  Receipt Date: 20110601
  Transmission Date: 20111010
  Serious: No
  Sender: FDA-Public Use
  Company Number: US-B.I. PHARMACEUTICALS,INC./RIDGEFIELD-2011-BP-05527BP

PATIENT
  Sex: Male
  Weight: 137.43 kg

DRUGS (15)
  1. NEXIUM [Concomitant]
     Dosage: 40 MG
     Dates: start: 20110205
  2. DILTIAZEM [Concomitant]
     Dosage: 120 MG
  3. GLIPIZIDE [Concomitant]
     Dosage: 5 MG
  4. LEVOTHYROXINE SODIUM [Concomitant]
     Dosage: 0.025 MG
  5. METFORMIN HCL [Concomitant]
     Dosage: 2000 MG
  6. MULTI-VITAMIN [Concomitant]
  7. AVODART [Concomitant]
     Dosage: 0.5 MG
  8. CARTIA XT [Concomitant]
     Dosage: 120 MG
  9. SIMVASTATIN [Concomitant]
     Dosage: 40 MG
  10. POTASSIUM [Concomitant]
     Dosage: 99 MG
  11. FLOMAX [Concomitant]
     Dosage: 0.4 MG
  12. ZOCOR [Concomitant]
     Dosage: 40 MG
  13. PRADAXA [Suspect]
     Indication: ATRIAL FIBRILLATION
     Dosage: 300 MG
     Route: 048
     Dates: start: 20110206
  14. FOLBIC [Concomitant]
     Dosage: 25 MG
  15. TOPROL-XL [Concomitant]
     Dosage: 200 MG

REACTIONS (2)
  - PARAESTHESIA [None]
  - CHEST PAIN [None]
